FAERS Safety Report 9410839 (Version 1)
Quarter: 2013Q3

REPORT INFORMATION
  Report Type: Spontaneous
  Country: AU (occurrence: AU)
  Receive Date: 20130719
  Receipt Date: 20130719
  Transmission Date: 20140515
  Serious: Yes (Hospitalization)
  Sender: FDA-Public Use
  Company Number: AU-009507513-1307AUS008102

PATIENT
  Age: 3 Year
  Sex: Male
  Weight: 21 kg

DRUGS (1)
  1. CLARATYNE [Suspect]
     Dosage: 10 ML, UNK
     Route: 048
     Dates: start: 20040829

REACTIONS (7)
  - Tremor [Unknown]
  - Accidental overdose [Unknown]
  - Accidental exposure to product by child [Unknown]
  - Somnolence [Unknown]
  - Flushing [Unknown]
  - Micturition disorder [Unknown]
  - Pyrexia [Unknown]
